FAERS Safety Report 6863244-5 (Version None)
Quarter: 2010Q3

REPORT INFORMATION
  Report Type: 
  Country: None (occurrence: None)
  Receive Date: 20100721
  Receipt Date: 20100719
  Transmission Date: 20110219
  Serious: Yes (Death)
  Sender: FDA-Public Use
  Company Number: PHHO2010FR10823

PATIENT
  Sex: Male
  Weight: 55 kg

DRUGS (10)
  1. STI571/CGP57148B T35717+TAB [Suspect]
     Indication: ACUTE LYMPHOCYTIC LEUKAEMIA
     Dosage: 400 MG DAILY
     Route: 048
     Dates: start: 20100701
  2. DEXAMETHASONE [Concomitant]
  3. ONDANSETRON [Concomitant]
  4. VINCRISTINE [Concomitant]
  5. CYCLOPHOSPHAMIDE [Concomitant]
  6. NEULASTA [Concomitant]
  7. DOXORUBICIN HCL [Concomitant]
  8. METHOTREXATE [Concomitant]
  9. CYTARABINE [Concomitant]
  10. PREDNISOLONE [Concomitant]

REACTIONS (4)
  - DYSPNOEA [None]
  - FEBRILE BONE MARROW APLASIA [None]
  - SEPSIS [None]
  - SEPTIC SHOCK [None]
